FAERS Safety Report 6003544-4 (Version None)
Quarter: 2008Q4

REPORT INFORMATION
  Report Type: 
  Country: None (occurrence: None)
  Receive Date: 20081212
  Receipt Date: 20081212
  Transmission Date: 20090506
  Serious: No
  Sender: FDA-Public Use
  Company Number: None

PATIENT
  Sex: Male
  Weight: 78.18 kg

DRUGS (2)
  1. ATENOLOL [Suspect]
     Dosage: 25MG TABLET 25 MG QD ORAL
     Route: 048
     Dates: start: 20080402, end: 20081211
  2. ZITHROMAX [Concomitant]

REACTIONS (1)
  - LETHARGY [None]
